FAERS Safety Report 5633446-4 (Version None)
Quarter: 2008Q1

REPORT INFORMATION
  Report Type: 
  Country: None (occurrence: None)
  Receive Date: 20080219
  Receipt Date: 20080208
  Transmission Date: 20080703
  Serious: Yes (Hospitalization)
  Sender: FDA-Public Use
  Company Number: 2008US000493

PATIENT
  Age: 51 Year
  Sex: Female

DRUGS (3)
  1. PROGRAF [Suspect]
     Indication: RENAL TRANSPLANT
  2. METHYLPREDNISOLONE [Concomitant]
  3. MYCOPHENOLATE MOFETIL [Concomitant]

REACTIONS (4)
  - BRAIN OEDEMA [None]
  - CEREBRAL DISORDER [None]
  - ENDOTHELIAL DYSFUNCTION [None]
  - REVERSIBLE POSTERIOR LEUKOENCEPHALOPATHY SYNDROME [None]
